FAERS Safety Report 23544173 (Version 1)
Quarter: 2024Q1

REPORT INFORMATION
  Report Type: Spontaneous
  Country: US (occurrence: US)
  Receive Date: 20240220
  Receipt Date: 20240220
  Transmission Date: 20240410
  Serious: Yes (Death, Other)
  Sender: FDA-Public Use
  Company Number: US-SA-SAC20240216001428

PATIENT
  Sex: Male
  Weight: 61 kg

DRUGS (2)
  1. DUPIXENT [Suspect]
     Active Substance: DUPILUMAB
     Indication: Transient acantholytic dermatosis
     Dosage: 300 MG, QOW
     Route: 058
  2. IRON [Concomitant]
     Active Substance: IRON

REACTIONS (2)
  - Death [Fatal]
  - Product use in unapproved indication [Unknown]
